FAERS Safety Report 5088672-2 (Version None)
Quarter: 2006Q3

REPORT INFORMATION
  Report Type: 
  Country: None (occurrence: None)
  Receive Date: 20060822
  Receipt Date: 20060809
  Transmission Date: 20061208
  Serious: Yes (Hospitalization)
  Sender: FDA-Public Use
  Company Number: 2006SP002963

PATIENT
  Age: 83 Year
  Sex: Female

DRUGS (11)
  1. XOPENEX [Suspect]
     Indication: CHRONIC OBSTRUCTIVE PULMONARY DISEASE
     Dosage: 1.25 MG/3ML;TID;INHALATION
     Route: 055
     Dates: start: 20050401, end: 20060808
  2. FUROSEMIDE [Concomitant]
  3. VALSARTAN [Concomitant]
  4. DILTIAZEM HYDROCHLORIDE [Concomitant]
  5. ACTONEL [Concomitant]
  6. HYDROXYCHLOROQUINE SULFATE [Concomitant]
  7. TIOTROPIUM BROMIDE [Concomitant]
  8. LUCENTIS [Concomitant]
  9. PENTOXIFYLLINE [Concomitant]
  10. PANTOPRAZOLE SODIUM [Concomitant]
  11. XALATAN [Concomitant]

REACTIONS (2)
  - CEREBELLAR INFARCTION [None]
  - TREMOR [None]
